FAERS Safety Report 11701638 (Version 1)
Quarter: 2015Q4

REPORT INFORMATION
  Report Type: Spontaneous
  Country: US (occurrence: US)
  Receive Date: 20151105
  Receipt Date: 20151105
  Transmission Date: 20160304
  Serious: No
  Sender: FDA-Public Use
  Company Number: US-MALLINCKRODT-T201501233

PATIENT
  Sex: Female
  Weight: 75 kg

DRUGS (15)
  1. VITAMIN D [Concomitant]
     Active Substance: CHOLECALCIFEROL
     Dosage: 50000 IU, QW
  2. ATIVAN [Concomitant]
     Active Substance: LORAZEPAM
     Indication: PANIC ATTACK
     Dosage: 2 MG, QHS
  3. ATIVAN [Concomitant]
     Active Substance: LORAZEPAM
     Indication: INSOMNIA
  4. CLARITIN [Concomitant]
     Active Substance: LORATADINE
     Dosage: UNK, PRN
  5. VITAMIN B [Concomitant]
     Active Substance: VITAMIN B
  6. OXYCODONE [Concomitant]
     Active Substance: OXYCODONE
     Indication: PAIN
     Dosage: UNK, PRN
  7. FENTANYL TRANSDERMAL SYSTEM [Suspect]
     Active Substance: FENTANYL
     Indication: PAIN
     Dosage: ONE 75 MCG/HR PATCH, Q72 HRS
     Route: 062
  8. FENTANYL TRANSDERMAL SYSTEM [Suspect]
     Active Substance: FENTANYL
     Indication: OSTEOARTHRITIS
     Dosage: 75 MCG/HR, Q 48 HRS
     Route: 062
  9. CELEBREX [Concomitant]
     Active Substance: CELECOXIB
  10. FENTANYL TRANSDERMAL SYSTEM [Suspect]
     Active Substance: FENTANYL
     Indication: INTERVERTEBRAL DISC PROTRUSION
     Dosage: 100 MCG/HR, Q 48HRS
     Route: 062
  11. LYRICA [Concomitant]
     Active Substance: PREGABALIN
  12. POTASSIUM [Concomitant]
     Active Substance: POTASSIUM
     Dosage: UNK, PRN
  13. PROZAC [Concomitant]
     Active Substance: FLUOXETINE HYDROCHLORIDE
     Dosage: 40 MG
  14. LASIX [Concomitant]
     Active Substance: FUROSEMIDE
  15. SUDAFED [Concomitant]
     Active Substance: PSEUDOEPHEDRINE HYDROCHLORIDE
     Dosage: UNK, PRN

REACTIONS (7)
  - Weight decreased [Not Recovered/Not Resolved]
  - Product physical issue [Not Recovered/Not Resolved]
  - Drug effect decreased [Not Recovered/Not Resolved]
  - Product adhesion issue [Unknown]
  - Drug ineffective [Not Recovered/Not Resolved]
  - Rosacea [Not Recovered/Not Resolved]
  - Application site perspiration [Not Recovered/Not Resolved]
